FAERS Safety Report 16112116 (Version 1)
Quarter: 2019Q1

REPORT INFORMATION
  Report Type: Report from Study
  Country: CA (occurrence: CA)
  Receive Date: 20190325
  Receipt Date: 20190325
  Transmission Date: 20190418
  Serious: Yes (Hospitalization)
  Sender: FDA-Public Use
  Company Number: CA-TEVA-2019-CA-1026693

PATIENT
  Sex: Female

DRUGS (5)
  1. COPAXONE [Suspect]
     Active Substance: GLATIRAMER ACETATE
     Indication: MULTIPLE SCLEROSIS
     Route: 065
     Dates: start: 20180615, end: 20190313
  2. XANAX [Concomitant]
     Active Substance: ALPRAZOLAM
  3. RIVA-EFFEXOR [Concomitant]
  4. ATIVAN [Concomitant]
     Active Substance: LORAZEPAM
  5. VITAMIN D [Concomitant]
     Active Substance: CHOLECALCIFEROL

REACTIONS (6)
  - Urticaria [Not Recovered/Not Resolved]
  - Hypersensitivity [Recovering/Resolving]
  - Lip swelling [Recovering/Resolving]
  - Pruritus [Recovering/Resolving]
  - Oral mucosal erythema [Recovering/Resolving]
  - Dyspnoea [Recovering/Resolving]
